FAERS Safety Report 9173218 (Version 1)
Quarter: 2013Q1

REPORT INFORMATION
  Report Type: Spontaneous
  Country: US (occurrence: None)
  Receive Date: 20130314
  Receipt Date: 20130314
  Transmission Date: 20140127
  Serious: Yes (Hospitalization, Other)
  Sender: FDA-Public Use
  Company Number: 2013PL000045

PATIENT
  Age: 59 Year
  Sex: Female
  Weight: 58.97 kg

DRUGS (6)
  1. IMURAN [Suspect]
     Indication: CROHN^S DISEASE
     Dates: start: 201205, end: 201205
  2. CREON [Suspect]
     Indication: SHORT-BOWEL SYNDROME
     Dates: start: 201205
  3. HUMIRA [Concomitant]
     Indication: CROHN^S DISEASE
     Dates: start: 201103, end: 201202
  4. TRIAMTERENE AND HYDROCHLOROTHIAZIDE [Concomitant]
  5. LEVEMIR [Concomitant]
  6. TYLENOL W/CODEINE [Concomitant]

REACTIONS (12)
  - Lupus-like syndrome [None]
  - Antinuclear antibody positive [None]
  - Pancreatitis [None]
  - Nasopharyngitis [None]
  - Bronchitis [None]
  - Blood triglycerides increased [None]
  - Hypothyroidism [None]
  - Crohn^s disease [None]
  - Disease recurrence [None]
  - C-reactive protein increased [None]
  - Malaise [None]
  - Red blood cell sedimentation rate increased [None]
